FAERS Safety Report 4519441-7 (Version None)
Quarter: 2004Q4

REPORT INFORMATION
  Report Type: 
  Country: None (occurrence: None)
  Receive Date: 20041202
  Receipt Date: 20041119
  Transmission Date: 20050328
  Serious: Yes (Death)
  Sender: FDA-Public Use
  Company Number: 2004097657

PATIENT
  Age: 78 Year
  Sex: Male

DRUGS (12)
  1. CELEBREX [Suspect]
     Indication: RHEUMATOID ARTHRITIS
     Dosage: 400 MG (400 MG, 1 IN 1 D), ORAL
     Route: 048
     Dates: start: 20040705, end: 20040901
  2. FLUOROURACIL [Concomitant]
  3. OXALIPLATIN [Concomitant]
  4. OXYCONTIN [Concomitant]
  5. LATANOPROST [Concomitant]
  6. ZOPICLONE [Concomitant]
  7. TAMSULOSIN HYDROCHLORIDE [Concomitant]
  8. THEOPHYLLINE [Concomitant]
  9. ACETYLCYSTEINE [Concomitant]
  10. GENTAMICIN [Concomitant]
  11. BENZYLPENICILLIN SODIUM [Concomitant]
  12. PREDNISOLONE [Concomitant]

REACTIONS (2)
  - GASTRIC ULCER [None]
  - HAEMORRHAGE [None]
